FAERS Safety Report 4884376-7 (Version None)
Quarter: 2006Q1

REPORT INFORMATION
  Report Type: 
  Country: None (occurrence: None)
  Receive Date: 20060117
  Receipt Date: 20060117
  Transmission Date: 20060701
  Serious: Yes (Life-Threatening)
  Sender: FDA-Public Use
  Company Number: None

PATIENT
  Age: 65 Year
  Sex: Female
  Weight: 12.8 kg

DRUGS (3)
  1. ZYVOX [Suspect]
     Dosage: 600 MG IV
     Route: 042
     Dates: start: 20051104, end: 20051106
  2. VANCOMYCIN [Concomitant]
  3. CIPRO [Concomitant]

REACTIONS (1)
  - TOXIC EPIDERMAL NECROLYSIS [None]
